FAERS Safety Report 5762493-7 (Version None)
Quarter: 2008Q2

REPORT INFORMATION
  Report Type: 
  Country: None (occurrence: None)
  Receive Date: 20080609
  Receipt Date: 20080604
  Transmission Date: 20081010
  Serious: Yes (Other)
  Sender: FDA-Public Use
  Company Number: A0715542A

PATIENT
  Age: 35 Year
  Sex: Male

DRUGS (8)
  1. PAXIL [Suspect]
     Indication: DRUG USE FOR UNKNOWN INDICATION
     Route: 048
  2. DOXEPIN HCL [Suspect]
     Indication: DEPRESSION
     Route: 065
  3. RITALIN [Suspect]
     Indication: DRUG USE FOR UNKNOWN INDICATION
     Route: 065
  4. PROVIGIL [Suspect]
     Indication: DRUG USE FOR UNKNOWN INDICATION
     Route: 065
  5. TESTOSTERONE [Suspect]
     Indication: DRUG USE FOR UNKNOWN INDICATION
     Route: 065
  6. CONCERTA [Suspect]
  7. FINASTERIDE [Suspect]
  8. VALIUM [Suspect]

REACTIONS (15)
  - ADVERSE EVENT [None]
  - AGGRESSION [None]
  - CHILD ABUSE [None]
  - COPROLALIA [None]
  - DEPRESSED LEVEL OF CONSCIOUSNESS [None]
  - DRUG INTERACTION [None]
  - HEADACHE [None]
  - HOMICIDE [None]
  - LABORATORY TEST ABNORMAL [None]
  - LOSS OF CONSCIOUSNESS [None]
  - SCREAMING [None]
  - THINKING ABNORMAL [None]
  - TREMOR [None]
  - VERBAL ABUSE [None]
  - WITHDRAWAL SYNDROME [None]
